FAERS Safety Report 20135104 (Version 1)
Quarter: 2021Q4

REPORT INFORMATION
  Report Type: Spontaneous
  Country: US (occurrence: None)
  Receive Date: 20211201
  Receipt Date: 20211201
  Transmission Date: 20220304
  Serious: Yes (Death, Hospitalization)
  Sender: FDA-Public Use
  Company Number: None

PATIENT
  Sex: Male
  Weight: 68.2 kg

DRUGS (6)
  1. CYTARABINE [Suspect]
     Active Substance: CYTARABINE
     Dates: end: 20211112
  2. DAUNORUBICIN [Suspect]
     Active Substance: DAUNORUBICIN
     Dates: end: 20211112
  3. MYLOTARG [Suspect]
     Active Substance: GEMTUZUMAB OZOGAMICIN
     Dates: end: 20211117
  4. ZINECARD [Suspect]
     Active Substance: DEXRAZOXANE HYDROCHLORIDE
     Dates: end: 20211112
  5. HYDROCORTISONE [Suspect]
     Active Substance: HYDROCORTISONE
     Dates: end: 20211126
  6. METHOTREXATE [Suspect]
     Active Substance: METHOTREXATE
     Dates: end: 20211126

REACTIONS (6)
  - Respiratory failure [None]
  - Dialysis [None]
  - Acute kidney injury [None]
  - General physical health deterioration [None]
  - Multiple organ dysfunction syndrome [None]
  - Gastrointestinal necrosis [None]

NARRATIVE: CASE EVENT DATE: 20211112
